FAERS Safety Report 16311363 (Version 2)
Quarter: 2020Q3

REPORT INFORMATION
  Report Type: Spontaneous
  Country: AU (occurrence: AU)
  Receive Date: 20190514
  Receipt Date: 20200812
  Transmission Date: 20201102
  Serious: Yes (Other)
  Sender: FDA-Public Use
  Company Number: AU-009507513-2011SP013711

PATIENT
  Sex: Female

DRUGS (4)
  1. ORGALUTRAN [Suspect]
     Active Substance: GANIRELIX ACETATE
     Indication: IN VITRO FERTILISATION
     Dosage: UNK UNK, UNKNOWN
     Route: 051
  2. VITAMINS (UNSPECIFIED) [Concomitant]
     Active Substance: VITAMINS
     Indication: PRODUCT USED FOR UNKNOWN INDICATION
     Dosage: UNK UNK, UNKNOWN
     Route: 065
  3. PUREGON [Concomitant]
     Indication: IN VITRO FERTILISATION
     Dosage: UNK UNK, UNKNOWN
     Route: 065
  4. OMEGA?3 MARINE TRIGLYCERIDES [Concomitant]
     Active Substance: OMEGA-3-ACID ETHYL ESTERS
     Indication: PRODUCT USED FOR UNKNOWN INDICATION
     Dosage: UNK UNK, UNKNOWN
     Route: 065

REACTIONS (12)
  - Tremor [Recovered/Resolved]
  - Headache [Unknown]
  - Psychomotor hyperactivity [Recovered/Resolved]
  - Therapeutic response decreased [Recovered/Resolved]
  - Injection site pain [Unknown]
  - Injection site haemorrhage [Unknown]
  - Application site bruise [Unknown]
  - Hot flush [Unknown]
  - Daydreaming [Unknown]
  - Syncope [Unknown]
  - Needle issue [Unknown]
  - Vision blurred [Unknown]
